FAERS Safety Report 8191218 (Version 4)
Quarter: 2024Q2

REPORT INFORMATION
  Report Type: Spontaneous
  Country: NL (occurrence: NL)
  Receive Date: 20111020
  Receipt Date: 20240415
  Transmission Date: 20240716
  Serious: Yes (Death, Hospitalization, Other)
  Sender: FDA-Public Use
  Company Number: PHHY2011NL91444

PATIENT
  Age: 66 Year
  Sex: Male

DRUGS (2)
  1. ZOLEDRONIC ACID [Suspect]
     Active Substance: ZOLEDRONIC ACID
     Indication: Prostate cancer
     Dosage: UNK
     Route: 065
  2. DOCETAXEL [Suspect]
     Active Substance: DOCETAXEL\DOCETAXEL ANHYDROUS
     Indication: Prostate cancer
     Dosage: UNK
     Route: 065

REACTIONS (14)
  - Death [Fatal]
  - Thrombotic thrombocytopenic purpura [Fatal]
  - Haemolytic uraemic syndrome [Fatal]
  - Renal failure [Fatal]
  - Fatigue [Unknown]
  - Mental disorder [Unknown]
  - Thrombocytopenia [Unknown]
  - Haemoglobin decreased [Unknown]
  - Blood creatinine increased [Unknown]
  - Mental status changes [Unknown]
  - Haemolysis [Unknown]
  - Normocytic anaemia [Unknown]
  - Red blood cell schistocytes present [Unknown]
  - Product use in unapproved indication [Unknown]
